FAERS Safety Report 10855828 (Version 1)
Quarter: 2015Q1

REPORT INFORMATION
  Report Type: Spontaneous
  Country: US (occurrence: None)
  Receive Date: 20150218
  Receipt Date: 20150218
  Transmission Date: 20150721
  Serious: Yes (Disabling)
  Sender: FDA-Public Use
  Company Number: None

PATIENT
  Age: 52 Year
  Sex: Female
  Weight: 62.6 kg

DRUGS (7)
  1. GILENYA [Suspect]
     Active Substance: FINGOLIMOD HYDROCHLORIDE
     Indication: MULTIPLE SCLEROSIS
     Dosage: 1 PILL
     Route: 048
     Dates: start: 20150202, end: 20150213
  2. 200 IN VITAMIN D [Concomitant]
  3. EVENING PROMISE OIL [Concomitant]
  4. ROYAL JELLY [Concomitant]
     Active Substance: ROYAL JELLY
  5. AMPODIPINE 2.5 MG [Concomitant]
  6. MULTIVITAMINS [Concomitant]
     Active Substance: VITAMINS
  7. CLARITIN [Concomitant]
     Active Substance: LORATADINE

REACTIONS (12)
  - Dizziness [None]
  - Balance disorder [None]
  - Asthenia [None]
  - Fatigue [None]
  - Diarrhoea [None]
  - Headache [None]
  - Abdominal discomfort [None]
  - Palpitations [None]
  - Vertigo [None]
  - Photophobia [None]
  - Chest discomfort [None]
  - Multiple sclerosis [None]

NARRATIVE: CASE EVENT DATE: 20150216
